FAERS Safety Report 5967930-0 (Version None)
Quarter: 2008Q4

REPORT INFORMATION
  Report Type: 
  Country: None (occurrence: None)
  Receive Date: 20081126
  Receipt Date: 20081119
  Transmission Date: 20090506
  Serious: Yes (Other)
  Sender: FDA-Public Use
  Company Number: US-BIOGENIDEC-2008BI031922

PATIENT
  Sex: Male

DRUGS (1)
  1. AVONEX [Suspect]
     Indication: DRUG EXPOSURE DURING PREGNANCY
     Route: 064
     Dates: start: 20010501, end: 20020101

REACTIONS (3)
  - CARDIAC DISORDER [None]
  - MATERNAL DRUGS AFFECTING FOETUS [None]
  - PYELOCALIECTASIS [None]
